FAERS Safety Report 9521335 (Version 1)
Quarter: 2013Q1

REPORT INFORMATION
  Report Type: Spontaneous
  Country: US (occurrence: None)
  Receive Date: 20130305
  Receipt Date: 20130305
  Transmission Date: 20140127
  Serious: Yes (Other)
  Sender: FDA-Public Use
  Company Number: 163-21880-12073129

PATIENT
  Age: 52 Year
  Sex: Female
  Weight: 74.84 kg

DRUGS (10)
  1. REVLIMID (LENALIDOMIDE) (CAPSULES) [Suspect]
     Indication: PLASMA CELL MYELOMA
     Dosage: 10 MG, 1 IN 2 D, PO
     Route: 048
     Dates: start: 20080918, end: 20120408
  2. ACYCLOVIR (ACICLOVIR) (UNKNOWN) [Concomitant]
  3. ATIVAN (LORAZEPAM) (UNKNOWN) [Concomitant]
  4. CALCIUM (CALCIUM) (UNKNOWN) [Concomitant]
  5. CLARITHROMYCIN (CLARITHROMYCIN) (UNKNOWN) [Concomitant]
  6. DAPSONE (DAPSONE) (UNKNOWN) [Concomitant]
  7. DEXAMETHASONE (DEXAMETHASONE) (UNKNOWN) [Concomitant]
  8. PRILOSEC (OMEPRAZOLE) (UNKNOWN) [Concomitant]
  9. PROCHLORPERAZINE (PROCHLORPERAZINE) (UNKNOWN) [Concomitant]
  10. VITAMIN D (ERGOCALCIFEROL) (UNKNOWN) [Concomitant]

REACTIONS (1)
  - Full blood count decreased [None]
